FAERS Safety Report 10017177 (Version 4)
Quarter: 2014Q3

REPORT INFORMATION
  Report Type: Spontaneous
  Country: FR (occurrence: FR)
  Receive Date: 20140318
  Receipt Date: 20140710
  Transmission Date: 20150326
  Serious: Yes (Death, Hospitalization)
  Sender: FDA-Public Use
  Company Number: FR-009507513-1403FRA005604

PATIENT
  Age: 81 Year
  Sex: Female
  Weight: 53 kg

DRUGS (6)
  1. EVIPLERA [Suspect]
     Active Substance: EMTRICITABINE\RILPIVIRINE\TENOFOVIR DISOPROXIL FUMARATE
     Indication: HIV INFECTION
     Dosage: 1 DF, QD
     Route: 048
     Dates: start: 20140203, end: 20140220
  2. NORVIR [Suspect]
     Active Substance: RITONAVIR
     Indication: HIV INFECTION
     Dosage: 100 MG, QD
     Route: 048
     Dates: start: 20030911, end: 20140203
  3. COLTRAMYL [Suspect]
     Active Substance: THIOCOLCHICOSIDE
     Dosage: 2 DF, BID
     Route: 048
     Dates: start: 20140203, end: 20140206
  4. DEXERYL CREAM [Suspect]
     Active Substance: GLYCERIN\PARAFFIN
     Dosage: 1 DF, QD
     Route: 061
     Dates: start: 20140203, end: 20140220
  5. ISENTRESS [Suspect]
     Active Substance: RALTEGRAVIR POTASSIUM
     Indication: HIV INFECTION
     Dosage: 400 MG, BID
     Route: 048
     Dates: start: 20080703, end: 20140203
  6. INVIRASE [Suspect]
     Active Substance: SAQUINAVIR MESYLATE
     Indication: HIV INFECTION
     Dosage: 500 MG, TID
     Route: 048
     Dates: start: 20060821, end: 20140203

REACTIONS (5)
  - Myocarditis [Fatal]
  - Cardiogenic shock [Fatal]
  - Inflammatory marker increased [Fatal]
  - Myocardial infarction [Fatal]
  - Lactic acidosis [Fatal]

NARRATIVE: CASE EVENT DATE: 20140210
